FAERS Safety Report 26179383 (Version 1)
Quarter: 2025Q4

REPORT INFORMATION
  Report Type: Spontaneous
  Country: US (occurrence: None)
  Receive Date: 20251218
  Receipt Date: 20251218
  Transmission Date: 20260119
  Serious: Yes (Other)
  Sender: FDA-CTU
  Company Number: None

PATIENT
  Age: 41 Year
  Sex: Female

DRUGS (1)
  1. TYSABRI [Suspect]
     Active Substance: NATALIZUMAB
     Dosage: OTHER FREQUENCY : EVERY 28 DAYS;

REACTIONS (4)
  - Diplopia [None]
  - Dizziness [None]
  - Blood pressure decreased [None]
  - Mental status changes [None]
